FAERS Safety Report 16929884 (Version 2)
Quarter: 2019Q4

REPORT INFORMATION
  Report Type: Report from Study
  Country: JP (occurrence: JP)
  Receive Date: 20191017
  Receipt Date: 20191126
  Transmission Date: 20200122
  Serious: Yes (Other)
  Sender: FDA-Public Use
  Company Number: JP-JNJFOC-20190712972

PATIENT
  Age: 76 Year
  Sex: Female
  Weight: 58.2 kg

DRUGS (18)
  1. DARZALEX [Suspect]
     Active Substance: DARATUMUMAB
     Indication: PLASMA CELL MYELOMA
     Dosage: UNKNOWN
     Route: 041
     Dates: start: 20180118, end: 20180118
  2. DARZALEX [Suspect]
     Active Substance: DARATUMUMAB
     Dosage: UNKNOWN
     Route: 041
     Dates: start: 20180228, end: 20180228
  3. DARZALEX [Suspect]
     Active Substance: DARATUMUMAB
     Dosage: UNKNOWN
     Route: 041
     Dates: start: 20180314, end: 20180314
  4. DARZALEX [Suspect]
     Active Substance: DARATUMUMAB
     Dosage: UNKNOWN
     Route: 041
     Dates: start: 20180201, end: 20180201
  5. VELCADE [Suspect]
     Active Substance: BORTEZOMIB
     Indication: PLASMA CELL MYELOMA
     Dosage: UNKNOWN
     Route: 065
     Dates: start: 20180118, end: 20180404
  6. DARZALEX [Suspect]
     Active Substance: DARATUMUMAB
     Dosage: UNKNOWN
     Route: 041
     Dates: start: 20180125, end: 20180125
  7. DEXAMETHASONE. [Concomitant]
     Active Substance: DEXAMETHASONE
     Route: 065
     Dates: start: 20180126, end: 20180126
  8. DEXAMETHASONE. [Concomitant]
     Active Substance: DEXAMETHASONE
     Indication: PLASMA CELL MYELOMA
     Route: 065
     Dates: start: 20180118, end: 20180118
  9. DEXAMETHASONE. [Concomitant]
     Active Substance: DEXAMETHASONE
     Route: 065
     Dates: start: 20180207, end: 20180404
  10. DARZALEX [Suspect]
     Active Substance: DARATUMUMAB
     Dosage: UNKNOWN
     Route: 041
     Dates: start: 20180214, end: 20180214
  11. DEXAMETHASONE. [Concomitant]
     Active Substance: DEXAMETHASONE
     Route: 065
     Dates: start: 20180119, end: 20180119
  12. DEXAMETHASONE. [Concomitant]
     Active Substance: DEXAMETHASONE
     Route: 065
     Dates: start: 20180125, end: 20180125
  13. DEXAMETHASONE. [Concomitant]
     Active Substance: DEXAMETHASONE
     Route: 065
     Dates: start: 20180202, end: 20180202
  14. DARZALEX [Suspect]
     Active Substance: DARATUMUMAB
     Dosage: UNKNOWN
     Route: 041
     Dates: start: 20180221, end: 20180221
  15. DARZALEX [Suspect]
     Active Substance: DARATUMUMAB
     Dosage: UNKNOWN
     Route: 041
     Dates: start: 20180328, end: 20180328
  16. DEXAMETHASONE. [Concomitant]
     Active Substance: DEXAMETHASONE
     Route: 065
     Dates: start: 20180201, end: 20180201
  17. DARZALEX [Suspect]
     Active Substance: DARATUMUMAB
     Dosage: UNKNOWN
     Route: 041
     Dates: start: 20180207, end: 20180207
  18. DARZALEX [Suspect]
     Active Substance: DARATUMUMAB
     Dosage: UNKNOWN
     Route: 041
     Dates: start: 20180404, end: 20180404

REACTIONS (4)
  - Platelet count decreased [Recovered/Resolved]
  - Anaemia [Recovering/Resolving]
  - White blood cell count decreased [Recovering/Resolving]
  - Facial paralysis [Recovered/Resolved]

NARRATIVE: CASE EVENT DATE: 20180124
